FAERS Safety Report 5600779-7 (Version None)
Quarter: 2008Q1

REPORT INFORMATION
  Report Type: 
  Country: None (occurrence: None)
  Receive Date: 20080123
  Receipt Date: 20080111
  Transmission Date: 20080703
  Serious: Yes (Other)
  Sender: FDA-Public Use
  Company Number: US-PFIZER INC-2007027812

PATIENT
  Sex: Female
  Weight: 108.9 kg

DRUGS (9)
  1. CHANTIX [Suspect]
     Indication: SMOKING CESSATION THERAPY
  2. CYMBALTA [Concomitant]
  3. TOPAMAX [Concomitant]
  4. RISPERDAL [Concomitant]
  5. PREVACID [Concomitant]
  6. DILTIAZEM HCL [Concomitant]
  7. WARFARIN [Concomitant]
  8. ELMIRON [Concomitant]
  9. OXYBUTYNIN CHLORIDE [Concomitant]

REACTIONS (10)
  - ABDOMINAL PAIN UPPER [None]
  - CHOLECYSTECTOMY [None]
  - DIARRHOEA [None]
  - DYSGEUSIA [None]
  - FATIGUE [None]
  - MALAISE [None]
  - NAUSEA [None]
  - OEDEMA PERIPHERAL [None]
  - PHARMACEUTICAL PRODUCT COMPLAINT [None]
  - WRONG TECHNIQUE IN DRUG USAGE PROCESS [None]
